FAERS Safety Report 5193761-8 (Version None)
Quarter: 2006Q4

REPORT INFORMATION
  Report Type: 
  Country: None (occurrence: None)
  Receive Date: 20061228
  Receipt Date: 20061220
  Transmission Date: 20070319
  Serious: Yes (Hospitalization)
  Sender: FDA-Public Use
  Company Number: FR-GLAXOSMITHKLINE-B0451285A

PATIENT
  Age: 42 Year
  Sex: Male
  Weight: 67 kg

DRUGS (3)
  1. TRIZIVIR [Suspect]
     Indication: HIV INFECTION
     Dosage: 1UNIT TWICE PER DAY
     Route: 048
     Dates: start: 20030615
  2. PEGASYS [Suspect]
     Dosage: 180MCG WEEKLY
     Route: 058
     Dates: start: 20061023, end: 20061119
  3. COPEGUS [Suspect]
     Dosage: 1G PER DAY
     Route: 048
     Dates: start: 20061023, end: 20061119

REACTIONS (4)
  - ANAEMIA [None]
  - DIABETES MELLITUS [None]
  - NEUTROPENIA [None]
  - WEIGHT DECREASED [None]
